FAERS Safety Report 9099027 (Version 2)
Quarter: 2013Q4

REPORT INFORMATION
  Report Type: Report from Study
  Country: US (occurrence: US)
  Receive Date: 20130214
  Receipt Date: 20131226
  Transmission Date: 20140711
  Serious: Yes (Hospitalization)
  Sender: FDA-Public Use
  Company Number: US-ELI_LILLY_AND_COMPANY-US201302001947

PATIENT
  Sex: Female

DRUGS (2)
  1. TERIPARATIDE [Suspect]
     Indication: SENILE OSTEOPOROSIS
     Dosage: UNK, QD
     Route: 065
     Dates: start: 20120217
  2. TERIPARATIDE [Suspect]
     Dosage: 20 UG, QD
     Route: 065

REACTIONS (4)
  - Vomiting [Unknown]
  - Pneumonia aspiration [Unknown]
  - Dyspnoea [Not Recovered/Not Resolved]
  - Cataract [Unknown]
